FAERS Safety Report 5063361-9 (Version None)
Quarter: 2006Q3

REPORT INFORMATION
  Report Type: 
  Country: None (occurrence: None)
  Receive Date: 20060724
  Receipt Date: 20060711
  Transmission Date: 20061208
  Serious: Yes (Other)
  Sender: FDA-Public Use
  Company Number: CHPA2006US06787

PATIENT
  Age: 33 Year
  Sex: Female
  Weight: 91.2 kg

DRUGS (2)
  1. NICOTINE [Suspect]
     Indication: SMOKING CESSATION THERAPY
     Dosage: 14 MG, QD, TRANSDERMAL
     Route: 062
     Dates: start: 20060710, end: 20060711
  2. CALNATE (ENALAPRIL MALEATE) [Concomitant]

REACTIONS (5)
  - DIZZINESS [None]
  - DRUG EXPOSURE DURING PREGNANCY [None]
  - DYSSTASIA [None]
  - GAIT DISTURBANCE [None]
  - NAUSEA [None]
